FAERS Safety Report 15229736 (Version 1)
Quarter: 2018Q4

REPORT INFORMATION
  Report Type: Spontaneous
  Country: US (occurrence: US)
  Receive Date: 20180802
  Receipt Date: 20180802
  Transmission Date: 20190204
  Serious: Yes (Other)
  Sender: FDA-Public Use
  Company Number: US-ACCORD-061909

PATIENT
  Age: 56 Year
  Sex: Female
  Weight: 105.23 kg

DRUGS (2)
  1. DOCETAXEL ACCORD HEALTHCARE, INC [Suspect]
     Active Substance: DOCETAXEL
     Indication: BREAST CANCER
     Dosage: DOSAGE: 140-160 MG
     Route: 042
     Dates: start: 20131123
  2. PARAPLATIN [Concomitant]
     Active Substance: CARBOPLATIN
     Indication: BREAST CANCER
     Dates: start: 20131123, end: 20140307

REACTIONS (1)
  - Alopecia [Not Recovered/Not Resolved]

NARRATIVE: CASE EVENT DATE: 201312
